FAERS Safety Report 24429226 (Version 1)
Quarter: 2024Q4

REPORT INFORMATION
  Report Type: Spontaneous
  Country: FR (occurrence: FR)
  Receive Date: 20241011
  Receipt Date: 20241011
  Transmission Date: 20250115
  Serious: Yes (Other)
  Sender: PURDUE
  Company Number: FR-PURDUE-USA-2024-0312497

PATIENT
  Age: 74 Year
  Sex: Female

DRUGS (2)
  1. DEXTROAMPHETAMINE SACCHARATE, AMPHETAMINE ASPARTATE, DEXTROAMPHETAMINE [Suspect]
     Active Substance: AMPHETAMINE ASPARTATE\AMPHETAMINE SULFATE\DEXTROAMPHETAMINE SACCHARATE\DEXTROAMPHETAMINE SULFATE
     Indication: Narcolepsy
     Dosage: UP TO 150 MG/24 HOURS
     Route: 048
  2. MODAFINIL [Suspect]
     Active Substance: MODAFINIL
     Indication: Narcolepsy
     Dosage: (UP TO 400 MG/24 HOURS) FOR 3 YEARS
     Route: 065

REACTIONS (3)
  - Dementia with Lewy bodies [Unknown]
  - Drug abuse [Unknown]
  - Agitation [Unknown]
